FAERS Safety Report 6424679-8 (Version None)
Quarter: 2009Q4

REPORT INFORMATION
  Report Type: 
  Country: None (occurrence: None)
  Receive Date: 20091102
  Receipt Date: 20091102
  Transmission Date: 20100525
  Serious: Yes (Hospitalization)
  Sender: FDA-Public Use
  Company Number: None

PATIENT
  Age: 40 Year
  Sex: Female

DRUGS (2)
  1. CYCLOPHOSPHAMIDE [Suspect]
     Dosage: 1120 MG OTHER IV
     Route: 042
     Dates: start: 20081002
  2. DOCETAXEL [Suspect]
     Dosage: 170 MG OTHER IV
     Route: 042
     Dates: start: 20081002

REACTIONS (3)
  - DIARRHOEA [None]
  - NAUSEA [None]
  - VOMITING [None]
